FAERS Safety Report 9914289 (Version 1)
Quarter: 2014Q1

REPORT INFORMATION
  Report Type: Spontaneous
  Country: US (occurrence: None)
  Receive Date: 20140218
  Receipt Date: 20140218
  Transmission Date: 20141002
  Serious: Yes (Hospitalization)
  Sender: FDA-Public Use
  Company Number: AUR-APL-2014-01403

PATIENT
  Age: 72 Year
  Sex: Male

DRUGS (7)
  1. LISINOPRIL [Suspect]
     Indication: PRODUCT USED FOR UNKNOWN INDICATION
  2. LITHIUM CARBONATE (LITHIUM CARBONATE) [Suspect]
     Indication: BIPOLAR DISORDER
     Dosage: 450 MG ER QHS AND 300MG DAILY, ORAL
     Route: 048
  3. ASPIRIN (ACETYLSALICYLIC ACID) [Suspect]
     Indication: PRODUCT USED FOR UNKNOWN INDICATION
  4. DULOXETINE (DULOXETINE) (DULOXETINE) [Concomitant]
  5. OLANZAPINE (OLANZAPINE) [Concomitant]
  6. PAROXETINE (PAROXETINE) [Concomitant]
  7. ARIPIPRAZOLE (ARIPIPRAZOLE) [Concomitant]

REACTIONS (12)
  - Hypotension [None]
  - Hypothermia [None]
  - Bradycardia [None]
  - Apnoea [None]
  - Toxicity to various agents [None]
  - Haemodialysis [None]
  - White blood cell count increased [None]
  - Hyponatraemia [None]
  - Blood creatinine increased [None]
  - Blood calcium decreased [None]
  - Lobar pneumonia [None]
  - Dehydration [None]
